FAERS Safety Report 5172505-X (Version None)
Quarter: 2006Q4

REPORT INFORMATION
  Report Type: 
  Country: None (occurrence: None)
  Receive Date: 20061205
  Receipt Date: 20061130
  Transmission Date: 20070319
  Serious: Yes (Death, Life-Threatening)
  Sender: FDA-Public Use
  Company Number: 200611AGG00520

PATIENT
  Age: 50 Year
  Sex: Male

DRUGS (4)
  1. AGGRASTAT [Suspect]
     Indication: ACUTE MYOCARDIAL INFARCTION
     Dosage: 0.25MG/ML DAILY IV
     Route: 042
     Dates: start: 20061114, end: 20061114
  2. AGGRASTAT [Suspect]
     Indication: ANGINA UNSTABLE
     Dosage: 0.25MG/ML DAILY IV
     Route: 042
     Dates: start: 20061114, end: 20061114
  3. ASPIRIN [Concomitant]
  4. ISOSORBIDE [Concomitant]

REACTIONS (2)
  - CARDIOGENIC SHOCK [None]
  - PULMONARY HAEMORRHAGE [None]
